FAERS Safety Report 8554246 (Version 3)
Quarter: 2017Q2

REPORT INFORMATION
  Report Type: Spontaneous
  Country: SE (occurrence: SE)
  Receive Date: 20120509
  Receipt Date: 20170516
  Transmission Date: 20170830
  Serious: Yes (Disabling, Other)
  Sender: FDA-Public Use
  Company Number: SE-BAYER-2012-043336

PATIENT
  Sex: Female

DRUGS (5)
  1. LEXINOR [Suspect]
     Active Substance: NORFLOXACIN
     Indication: DIVERTICULITIS
     Dosage: UNK
     Route: 048
     Dates: start: 200306
  2. AVELOX [Suspect]
     Active Substance: MOXIFLOXACIN HYDROCHLORIDE
     Indication: RESPIRATORY TRACT INFECTION
     Dosage: UNK
     Route: 048
     Dates: start: 200303
  3. CIPROXIN [Suspect]
     Active Substance: CIPROFLOXACIN
     Indication: WOUND INFECTION
     Dosage: UNK
     Route: 048
     Dates: start: 200209
  4. MINERALS NOS [Concomitant]
     Active Substance: MINERALS
     Dosage: UNK
  5. PREDNISOLONE. [Concomitant]
     Active Substance: PREDNISOLONE

REACTIONS (11)
  - Muscular weakness [Not Recovered/Not Resolved]
  - Peripheral swelling [None]
  - Bursitis [Not Recovered/Not Resolved]
  - Eyeglasses therapy [None]
  - Gait disturbance [None]
  - Tendon disorder [Not Recovered/Not Resolved]
  - Contusion [Not Recovered/Not Resolved]
  - Cataract [Not Recovered/Not Resolved]
  - Infective tenosynovitis [Not Recovered/Not Resolved]
  - Tendon disorder [Not Recovered/Not Resolved]
  - Mobility decreased [Not Recovered/Not Resolved]

NARRATIVE: CASE EVENT DATE: 200209
